FAERS Safety Report 22235663 (Version 1)
Quarter: 2023Q2

REPORT INFORMATION
  Report Type: Spontaneous
  Country: US (occurrence: US)
  Receive Date: 20230420
  Receipt Date: 20230420
  Transmission Date: 20230721
  Serious: No
  Sender: FDA-Public Use
  Company Number: US-MYLANLABS-2023M1039359

PATIENT
  Sex: Male
  Weight: 97.07 kg

DRUGS (1)
  1. SEMGLEE (INSULIN GLARGINE-YFGN) [Suspect]
     Active Substance: INSULIN GLARGINE-YFGN
     Indication: Diabetes mellitus
     Dosage: 38 INTERNATIONAL UNIT, QD (BEDTIME)
     Route: 058
     Dates: start: 20230314

REACTIONS (2)
  - Lack of injection site rotation [Unknown]
  - Device mechanical issue [Unknown]
